FAERS Safety Report 9256789 (Version 2)
Quarter: 2013Q2

REPORT INFORMATION
  Report Type: Spontaneous
  Country: US (occurrence: US)
  Receive Date: 20130426
  Receipt Date: 20130520
  Transmission Date: 20140414
  Serious: No
  Sender: FDA-Public Use
  Company Number: US-009507513-1304USA015740

PATIENT
  Age: 81 Year
  Sex: Male

DRUGS (9)
  1. SINEMET CR [Suspect]
     Indication: PARKINSON^S DISEASE
     Dosage: 4 DF, QID (50/200)
     Dates: start: 2005
  2. SINEMET CR [Concomitant]
     Dosage: 25/100, 5 TIMES DAILY
  3. COGENTIN [Concomitant]
     Dosage: 0.5 MG, BID
  4. ENTACAPONE [Concomitant]
     Dosage: 200 MG, TID
  5. ATENOLOL [Concomitant]
     Dosage: 25 MG, QD
  6. LOVENOX [Concomitant]
     Dosage: 40 MG, QD
  7. SYNTHROID [Concomitant]
     Dosage: 150 MG, QD
  8. LOVASTATIN [Concomitant]
     Dosage: 20 MG, QD
  9. FLOMAX (MORNIFLUMATE) [Concomitant]
     Dosage: 0.4 MG, QD

REACTIONS (1)
  - Accidental overdose [Unknown]
